FAERS Safety Report 6268981-1 (Version None)
Quarter: 2009Q3

REPORT INFORMATION
  Report Type: 
  Country: None (occurrence: None)
  Receive Date: 20090714
  Receipt Date: 20090714
  Transmission Date: 20100115
  Serious: Yes (Death)
  Sender: FDA-Public Use
  Company Number: None

PATIENT
  Age: 64 Year
  Sex: Male
  Weight: 154.223 kg

DRUGS (3)
  1. CELEBREX [Suspect]
     Indication: ARTHRITIS
     Dosage: 100 MG
  2. LASIX [Suspect]
     Indication: SWELLING
  3. MULTIPLE VITAMINS [Concomitant]

REACTIONS (1)
  - BLOOD CREATININE INCREASED [None]
